FAERS Safety Report 8354473-2 (Version None)
Quarter: 2012Q2

REPORT INFORMATION
  Report Type: 
  Country: None (occurrence: None)
  Receive Date: 20120511
  Receipt Date: 20110207
  Transmission Date: 20120825
  Serious: No
  Sender: FDA-Public Use
  Company Number: US-TEVA-2011000626

PATIENT
  Sex: Female
  Weight: 72.64 kg

DRUGS (6)
  1. NUVIGIL [Suspect]
     Indication: SLEEP APNOEA SYNDROME
     Dosage: 150 MILLIGRAM;
     Route: 048
     Dates: start: 20101101
  2. CARAFATE [Concomitant]
     Dates: start: 20100901
  3. LISINOPRIL [Concomitant]
  4. XANAX [Concomitant]
  5. NUVIGIL [Suspect]
     Dosage: 150 MILLIGRAM;
     Route: 048
     Dates: start: 20110206
  6. METHADONE HCL [Suspect]
     Dates: start: 20110206

REACTIONS (2)
  - FEELING JITTERY [None]
  - PSYCHOMOTOR HYPERACTIVITY [None]
